FAERS Safety Report 25410229 (Version 1)
Quarter: 2025Q2

REPORT INFORMATION
  Report Type: Spontaneous
  Country: US (occurrence: US)
  Receive Date: 20250608
  Receipt Date: 20250608
  Transmission Date: 20250716
  Serious: No
  Sender: SANDOZ
  Company Number: US-SANDOZ-SDZ2025US039543

PATIENT
  Age: 63 Year
  Sex: Male
  Weight: 79.365 kg

DRUGS (1)
  1. HYRIMOZ [Suspect]
     Active Substance: ADALIMUMAB-ADAZ
     Indication: Rheumatoid arthritis
     Dosage: 40 MG, Q2W
     Route: 030
     Dates: start: 20250101

REACTIONS (3)
  - Contusion [Unknown]
  - Erythema [Unknown]
  - Skin wound [Unknown]

NARRATIVE: CASE EVENT DATE: 20250101
